FAERS Safety Report 22104974 (Version 2)
Quarter: 2023Q1

REPORT INFORMATION
  Report Type: Spontaneous
  Country: US (occurrence: US)
  Receive Date: 20230316
  Receipt Date: 20230316
  Transmission Date: 20230417
  Serious: No
  Sender: FDA-Public Use
  Company Number: US-ALLERGAN-2302831US

PATIENT
  Sex: Female

DRUGS (2)
  1. DURYSTA [Suspect]
     Active Substance: BIMATOPROST
     Indication: Glaucoma
     Dosage: UNK, SINGLE
     Route: 031
     Dates: start: 20221129, end: 20221129
  2. DURYSTA [Suspect]
     Active Substance: BIMATOPROST
     Indication: Glaucoma
     Dosage: 0.01 MG, SINGLE
     Route: 031
     Dates: start: 20221213, end: 20221213

REACTIONS (2)
  - Visual field defect [Unknown]
  - Implant site discharge [Unknown]

NARRATIVE: CASE EVENT DATE: 20221201
